FAERS Safety Report 5419113-0 (Version None)
Quarter: 2007Q3

REPORT INFORMATION
  Report Type: 
  Country: None (occurrence: None)
  Receive Date: 20070816
  Receipt Date: 20070816
  Transmission Date: 20080115
  Serious: Yes (Hospitalization)
  Sender: FDA-Public Use
  Company Number: None

PATIENT
  Age: 74 Year
  Sex: Female
  Weight: 90.2 kg

DRUGS (2)
  1. FACTOR IX CONCENTRATE 3090 IU GRIFOLS USA [Suspect]
     Indication: HAEMORRHAGE INTRACRANIAL
     Dosage: 3090 INTERNATIONAL UNIT IV
     Route: 042
  2. FACTOR IX CONCENTRATE 3090 IU GRIFOLS USA [Suspect]
     Indication: HYPOCOAGULABLE STATE
     Dosage: 3090 INTERNATIONAL UNIT IV
     Route: 042

REACTIONS (2)
  - INFUSION SITE THROMBOSIS [None]
  - VENOUS THROMBOSIS [None]
